FAERS Safety Report 8410225-6 (Version None)
Quarter: 2012Q2

REPORT INFORMATION
  Report Type: 
  Country: None (occurrence: None)
  Receive Date: 20120605
  Receipt Date: 20120529
  Transmission Date: 20120825
  Serious: Yes (Death)
  Sender: FDA-Public Use
  Company Number: US-UCBSA-058188

PATIENT
  Age: 38 Year
  Sex: Female
  Weight: 80 kg

DRUGS (2)
  1. CERTOLIZUMAB [Suspect]
     Indication: RHEUMATOID ARTHRITIS
     Route: 058
     Dates: start: 20111126, end: 20120415
  2. METHOTREXATE [Concomitant]

REACTIONS (4)
  - MALAISE [None]
  - DEATH [None]
  - CIRCULATORY COLLAPSE [None]
  - VOMITING [None]
